FAERS Safety Report 5755789-6 (Version None)
Quarter: 2008Q2

REPORT INFORMATION
  Report Type: 
  Country: None (occurrence: None)
  Receive Date: 20080602
  Receipt Date: 20080526
  Transmission Date: 20081010
  Serious: Yes (Hospitalization)
  Sender: FDA-Public Use
  Company Number: PHHY2008IT08875

PATIENT
  Sex: Male

DRUGS (1)
  1. FLUVASTATIN SODIUM [Suspect]

REACTIONS (1)
  - MUSCLE NECROSIS [None]
